FAERS Safety Report 17269596 (Version 1)
Quarter: 2020Q1

REPORT INFORMATION
  Report Type: Spontaneous
  Country: FR (occurrence: FR)
  Receive Date: 20200114
  Receipt Date: 20200114
  Transmission Date: 20200409
  Serious: Yes (Hospitalization)
  Sender: FDA-Public Use
  Company Number: FR-MYLANLABS-2020M1003704

PATIENT
  Age: 7 Year
  Sex: Female
  Weight: 24 kg

DRUGS (8)
  1. FUNGIZONE [Concomitant]
     Active Substance: AMPHOTERICIN B
     Indication: PROPHYLAXIS
     Dosage: 15 MILLILITER, QD
     Route: 048
  2. ZOVIRAX [Concomitant]
     Active Substance: ACYCLOVIR
     Indication: PROPHYLAXIS
     Dosage: 800 MILLIGRAM, QD
     Route: 048
  3. PARACETAMOL [Concomitant]
     Active Substance: ACETAMINOPHEN
     Dosage: SI BESOIN
     Route: 041
  4. DEXAMETHASONE. [Suspect]
     Active Substance: DEXAMETHASONE
     Indication: ACUTE LYMPHOCYTIC LEUKAEMIA
     Dosage: 9MG A J1 ET J3
     Route: 048
     Dates: start: 20190813, end: 20190815
  5. VINCRISTINE ABIC [Suspect]
     Active Substance: VINCRISTINE SULFATE
     Indication: ACUTE LYMPHOCYTIC LEUKAEMIA
     Dosage: 1.35 MG A J3 ET J10
     Route: 041
     Dates: start: 20190815, end: 20190822
  6. VELCADE [Suspect]
     Active Substance: BORTEZOMIB
     Indication: ACUTE LYMPHOCYTIC LEUKAEMIA
     Dosage: 1.17 MG A J1 ET J4
     Route: 058
     Dates: start: 20190813, end: 20190816
  7. NOXAFIL [Concomitant]
     Active Substance: POSACONAZOLE
     Indication: PROPHYLAXIS
     Dosage: 210 MILLIGRAM, QD
     Route: 048
  8. BACTRIM [Concomitant]
     Active Substance: SULFAMETHOXAZOLE\TRIMETHOPRIM
     Indication: PROPHYLAXIS
     Dosage: 600MG LUNDI MERCREDI ET VENDREDI
     Route: 048

REACTIONS (3)
  - Posterior reversible encephalopathy syndrome [Recovered/Resolved]
  - Constipation [Recovering/Resolving]
  - Status epilepticus [Recovered/Resolved]

NARRATIVE: CASE EVENT DATE: 20190823
